FAERS Safety Report 5778375-0 (Version None)
Quarter: 2008Q2

REPORT INFORMATION
  Report Type: 
  Country: None (occurrence: None)
  Receive Date: 20080618
  Receipt Date: 20080618
  Transmission Date: 20081010
  Serious: No
  Sender: FDA-Public Use
  Company Number: None

PATIENT
  Age: 60 Year
  Sex: Male

DRUGS (2)
  1. OLANZAPINE [Suspect]
     Indication: BIPOLAR DISORDER
     Dates: start: 20080414, end: 20080523
  2. OLANZAPINE [Suspect]
     Indication: MANIA
     Dates: start: 20080414, end: 20080523

REACTIONS (1)
  - RHABDOMYOLYSIS [None]
